FAERS Safety Report 6714499-9 (Version None)
Quarter: 2010Q2

REPORT INFORMATION
  Report Type: 
  Country: None (occurrence: None)
  Receive Date: 20100506
  Receipt Date: 20100427
  Transmission Date: 20101027
  Serious: Yes (Other)
  Sender: FDA-Public Use
  Company Number: DE-WATSON-2010-05850

PATIENT
  Age: 64 Year
  Sex: Female

DRUGS (1)
  1. ACARBOSE [Suspect]
     Indication: DIABETES MELLITUS
     Dosage: UNK MG, DAILY
     Route: 048

REACTIONS (4)
  - ABDOMINAL PAIN [None]
  - DIARRHOEA [None]
  - PNEUMATOSIS INTESTINALIS [None]
  - WEIGHT DECREASED [None]
